FAERS Safety Report 5461914-7 (Version None)
Quarter: 2007Q3

REPORT INFORMATION
  Report Type: 
  Country: None (occurrence: None)
  Receive Date: 20070920
  Receipt Date: 20070110
  Transmission Date: 20080115
  Serious: No
  Sender: FDA-Public Use
  Company Number: A0634859A

PATIENT
  Age: 15 Year
  Sex: Male

DRUGS (1)
  1. ABREVA [Suspect]

REACTIONS (5)
  - DRUG INEFFECTIVE [None]
  - LIP EXFOLIATION [None]
  - LIP SWELLING [None]
  - ORAL HERPES [None]
  - THERMAL BURN [None]
